FAERS Safety Report 7378852-5 (Version None)
Quarter: 2011Q1

REPORT INFORMATION
  Report Type: 
  Country: None (occurrence: None)
  Receive Date: 20110328
  Receipt Date: 20110315
  Transmission Date: 20110831
  Serious: Yes (Hospitalization, Other)
  Sender: FDA-Public Use
  Company Number: PHHY2010JP85993

PATIENT
  Sex: Male
  Weight: 74 kg

DRUGS (10)
  1. AFINITOR [Suspect]
     Indication: METASTATIC RENAL CELL CARCINOMA
     Dosage: 10 MG, DAILY
     Route: 048
     Dates: start: 20101020, end: 20101125
  2. INTERFERON ALFA [Concomitant]
     Dosage: 3000000IU
     Dates: start: 19980501, end: 20010116
  3. THYRADIN S [Concomitant]
     Dosage: 50 MG, UNK
     Route: 048
  4. OMEPRAL [Concomitant]
     Dosage: 10 MG, UNK
     Route: 048
  5. OXYCONTIN [Concomitant]
     Indication: METASTATIC RENAL CELL CARCINOMA
     Dosage: 30 MG, UNK
     Route: 048
     Dates: start: 20101111
  6. PYDOXAL [Concomitant]
     Dosage: 30 MG, UNK
     Route: 048
  7. ZOMETA [Concomitant]
     Indication: METASTATIC RENAL CELL CARCINOMA
     Dosage: 4 MG, UNK
     Route: 041
     Dates: start: 20101110
  8. MUCOSTA [Concomitant]
     Dosage: 300 MG, UNK
     Route: 048
  9. VOLTAREN [Concomitant]
     Indication: METASTATIC RENAL CELL CARCINOMA
     Dosage: 75 MG, UNK
     Route: 048
  10. SUNITINIB MALATE [Concomitant]
     Dosage: 50 MG, UNK
     Route: 048
     Dates: start: 20080924, end: 20101006

REACTIONS (2)
  - HAEMATOCHEZIA [None]
  - HAEMOGLOBIN DECREASED [None]
